FAERS Safety Report 8416051-6 (Version None)
Quarter: 2012Q2

REPORT INFORMATION
  Report Type: 
  Country: None (occurrence: None)
  Receive Date: 20120606
  Receipt Date: 20120524
  Transmission Date: 20120825
  Serious: No
  Sender: FDA-Public Use
  Company Number: US-ASTRAZENECA-2012SE34069

PATIENT
  Age: 74 Year
  Sex: Female

DRUGS (2)
  1. ARIMIDEX [Suspect]
     Route: 048
  2. ARIMIDEX [Suspect]
     Route: 048

REACTIONS (5)
  - INFLUENZA LIKE ILLNESS [None]
  - NAUSEA [None]
  - VOMITING [None]
  - DYSPNOEA [None]
  - ADVERSE DRUG REACTION [None]
